FAERS Safety Report 14354333 (Version 1)
Quarter: 2018Q1

REPORT INFORMATION
  Report Type: Other
  Country: FR (occurrence: FR)
  Receive Date: 20180105
  Receipt Date: 20180105
  Transmission Date: 20180509
  Serious: Yes (Hospitalization, Other)
  Sender: FDA-Public Use
  Company Number: FR-MACLEODS PHARMACEUTICALS US LTD-MAC2017007926

PATIENT

DRUGS (2)
  1. RULID [Interacting]
     Active Substance: ROXITHROMYCIN
     Dosage: UNK
     Route: 048
     Dates: start: 20171122, end: 201711
  2. ESCITALOPRAM OXALATE. [Suspect]
     Active Substance: ESCITALOPRAM OXALATE
     Indication: DEPRESSION
     Dosage: 1 DF, QD
     Route: 048
     Dates: start: 2017, end: 20171122

REACTIONS (3)
  - Potentiating drug interaction [Recovered/Resolved]
  - Malaise [Recovered/Resolved]
  - Electrocardiogram QT prolonged [Recovered/Resolved]

NARRATIVE: CASE EVENT DATE: 20171122
